FAERS Safety Report 6801293-3 (Version None)
Quarter: 2010Q2

REPORT INFORMATION
  Report Type: 
  Country: None (occurrence: None)
  Receive Date: 20100629
  Receipt Date: 20100622
  Transmission Date: 20101027
  Serious: Yes (Other)
  Sender: FDA-Public Use
  Company Number: BR-SANOFI-AVENTIS-2010SA028685

PATIENT
  Age: 38 Year
  Sex: Female
  Weight: 65 kg

DRUGS (4)
  1. LANTUS [Suspect]
     Indication: TYPE 2 DIABETES MELLITUS
     Route: 058
     Dates: start: 20070101
  2. AUTOPEN 24 [Suspect]
     Dates: start: 20100401
  3. PURAN T4 [Concomitant]
     Route: 048
  4. FRONTAL [Concomitant]
     Indication: DEPRESSION
     Route: 048

REACTIONS (4)
  - BLOOD GLUCOSE INCREASED [None]
  - CATARACT [None]
  - HELICOBACTER INFECTION [None]
  - INJECTION SITE PAIN [None]
